FAERS Safety Report 13818752 (Version 4)
Quarter: 2018Q1

REPORT INFORMATION
  Report Type: Spontaneous
  Country: JP (occurrence: JP)
  Receive Date: 20170801
  Receipt Date: 20180102
  Transmission Date: 20180508
  Serious: Yes (Hospitalization)
  Sender: FDA-Public Use
  Company Number: JP-ASTRAZENECA-2017SE77952

PATIENT
  Age: 26808 Day
  Sex: Male
  Weight: 62 kg

DRUGS (1)
  1. CASODEX [Suspect]
     Active Substance: BICALUTAMIDE
     Indication: PROSTATE CANCER
     Route: 048
     Dates: start: 20170704, end: 20170712

REACTIONS (1)
  - Pericarditis constrictive [Recovering/Resolving]

NARRATIVE: CASE EVENT DATE: 20170708
